FAERS Safety Report 7194899-6 (Version None)
Quarter: 2010Q4

REPORT INFORMATION
  Report Type: 
  Country: None (occurrence: None)
  Receive Date: 20101223
  Receipt Date: 20100920
  Transmission Date: 20110411
  Serious: No
  Sender: FDA-Public Use
  Company Number: US-AMGEN-KDL439940

PATIENT

DRUGS (2)
  1. ENBREL [Suspect]
     Indication: RHEUMATOID ARTHRITIS
     Dosage: 25 MG, Q2WK
     Route: 058
     Dates: start: 20090708
  2. ENBREL [Suspect]
     Indication: PSORIASIS

REACTIONS (7)
  - BACK PAIN [None]
  - COLONIC POLYP [None]
  - CONSTIPATION [None]
  - DIARRHOEA [None]
  - INJECTION SITE PAIN [None]
  - LARGE INTESTINAL ULCER [None]
  - PAIN IN EXTREMITY [None]
